FAERS Safety Report 21570419 (Version 1)
Quarter: 2022Q4

REPORT INFORMATION
  Report Type: Spontaneous
  Country: ES (occurrence: MA)
  Receive Date: 20221109
  Receipt Date: 20221109
  Transmission Date: 20230112
  Serious: Yes (Death, Other)
  Sender: FDA-Public Use
  Company Number: ES-PFIZER INC-PV202200099232

PATIENT
  Sex: Female

DRUGS (3)
  1. PALBOCICLIB [Interacting]
     Active Substance: PALBOCICLIB
     Dosage: UNK
  2. FULVESTRANT [Interacting]
     Active Substance: FULVESTRANT
     Dosage: UNK
  3. ATORVASTATIN [Concomitant]
     Active Substance: ATORVASTATIN
     Dosage: UNK

REACTIONS (2)
  - Rhabdomyolysis [Fatal]
  - Drug interaction [Fatal]
